FAERS Safety Report 8608083 (Version 2)
Quarter: 2012Q4

REPORT INFORMATION
  Report Type: 
  Country: US (occurrence: US)
  Receive Date: 20120611
  Receipt Date: 20121210
  Transmission Date: 20130627
  Serious: Yes (Death)
  Sender: FDA-Public Use
  Company Number: US-PFIZER INC-2012135026

PATIENT
  Age: 55 Year
  Sex: Male

DRUGS (8)
  1. TORISEL [Suspect]
     Indication: MALIGNANT NEOPLASM OF KIDNEY, EXCEPT PELVIS
     Dosage: 25 mg, weekly
     Route: 042
     Dates: start: 201204, end: 201205
  2. ASA [Concomitant]
     Dosage: 81 mg, UNK
  3. FISH OIL [Concomitant]
     Dosage: 1000 mg, UNK
  4. VICODIN [Concomitant]
     Dosage: 5/325 1-2 Q4-6
  5. M.V.I. [Concomitant]
     Dosage: UNK
  6. NEXIUM [Concomitant]
     Dosage: 40 mg, UNK
  7. PRAVASTATIN [Concomitant]
     Dosage: 40 mg, UNK
  8. PROMETHAZINE [Concomitant]
     Dosage: 25 mg, UNK

REACTIONS (1)
  - Cardiac disorder [Fatal]
